FAERS Safety Report 10865275 (Version 1)
Quarter: 2015Q1

REPORT INFORMATION
  Report Type: Report from Study
  Country: US (occurrence: US)
  Receive Date: 20150224
  Receipt Date: 20150224
  Transmission Date: 20150721
  Serious: No
  Sender: FDA-Public Use
  Company Number: US-MYLANLABS-2014M1006581

PATIENT
  Sex: Male
  Weight: 91.6 kg

DRUGS (4)
  1. AMNESTEEM [Suspect]
     Active Substance: ISOTRETINOIN
     Indication: ACNE
     Dosage: 20 MG, QD
  2. WARFARIN [Concomitant]
     Active Substance: WARFARIN
     Dosage: 5 MG, MONDAY, WEDNESDAY, FRIDAY
  3. WARFARIN [Concomitant]
     Active Substance: WARFARIN
     Dosage: 7.5 MG, SUNDAY, TUESDAY, THURSDAY, SATURDAY
     Route: 048
  4. AMNESTEEM [Suspect]
     Active Substance: ISOTRETINOIN
     Indication: ACNE
     Dosage: 40 MG, QW
     Route: 048
     Dates: start: 20131112, end: 20141001

REACTIONS (4)
  - Impatience [Recovered/Resolved]
  - Unevaluable event [Recovered/Resolved]
  - Mood altered [Recovered/Resolved]
  - Drug dose omission [Recovered/Resolved]

NARRATIVE: CASE EVENT DATE: 2014
